FAERS Safety Report 7343606-2 (Version None)
Quarter: 2011Q1

REPORT INFORMATION
  Report Type: 
  Country: None (occurrence: None)
  Receive Date: 20110310
  Receipt Date: 20100712
  Transmission Date: 20110831
  Serious: No
  Sender: FDA-Public Use
  Company Number: A0869683A

PATIENT
  Sex: Male

DRUGS (1)
  1. NICOTINE [Suspect]

REACTIONS (3)
  - ELEVATED MOOD [None]
  - FACE OEDEMA [None]
  - NICOTINE DEPENDENCE [None]
